FAERS Safety Report 5258376-1 (Version None)
Quarter: 2007Q1

REPORT INFORMATION
  Report Type: 
  Country: None (occurrence: None)
  Receive Date: 20070306
  Receipt Date: 20070306
  Transmission Date: 20070707
  Serious: No
  Sender: FDA-Public Use
  Company Number: None

PATIENT
  Sex: Male

DRUGS (2)
  1. RISPERDAL [Suspect]
     Indication: AFFECTIVE DISORDER
     Dosage: 1/2 TABLET 4X'S DAILY PO
     Route: 048
     Dates: start: 20050613
  2. RISPERDAL [Suspect]
     Indication: AFFECTIVE DISORDER
     Dosage: 1/2 TABLET 4X'S DAILY PO
     Route: 048
     Dates: start: 20060806

REACTIONS (1)
  - RASH [None]
